FAERS Safety Report 22277830 (Version 1)
Quarter: 2023Q2

REPORT INFORMATION
  Report Type: Spontaneous
  Country: US (occurrence: None)
  Receive Date: 20230503
  Receipt Date: 20230503
  Transmission Date: 20230722
  Serious: Yes (Other)
  Sender: FDA-Public Use
  Company Number: 2023A100836

PATIENT
  Age: 1006 Month

DRUGS (1)
  1. BYDUREON BCISE [Suspect]
     Active Substance: EXENATIDE
     Route: 058
     Dates: start: 202303

REACTIONS (5)
  - Lower limb fracture [Unknown]
  - Injection site indentation [Unknown]
  - Throat irritation [Unknown]
  - Product use issue [Unknown]
  - Device use issue [Unknown]

NARRATIVE: CASE EVENT DATE: 20230301
